FAERS Safety Report 25214693 (Version 1)
Quarter: 2025Q2

REPORT INFORMATION
  Report Type: Spontaneous
  Country: US (occurrence: None)
  Receive Date: 20250417
  Receipt Date: 20250417
  Transmission Date: 20250717
  Serious: Yes (Life-Threatening, Hospitalization)
  Sender: FDA-CTU
  Company Number: None

PATIENT
  Age: 44 Year
  Sex: Female
  Weight: 76 kg

DRUGS (1)
  1. SODIUM FERRIC GLUCONATE COMPLEX [Suspect]
     Active Substance: SODIUM FERRIC GLUCONATE COMPLEX
     Indication: Iron deficiency anaemia
     Route: 042
     Dates: start: 20241021, end: 20241021

REACTIONS (5)
  - Laryngospasm [None]
  - Hypersensitivity [None]
  - Tetany [None]
  - Hypoaesthesia [None]
  - Hypoaesthesia oral [None]

NARRATIVE: CASE EVENT DATE: 20241021
